FAERS Safety Report 5803899-7 (Version None)
Quarter: 2008Q3

REPORT INFORMATION
  Report Type: 
  Country: None (occurrence: None)
  Receive Date: 20080707
  Receipt Date: 20080619
  Transmission Date: 20090109
  Serious: Yes (Death)
  Sender: FDA-Public Use
  Company Number: S08-UKI-02214-01

PATIENT
  Age: 70 Year
  Sex: Male

DRUGS (1)
  1. MEMANTINE HCL [Suspect]
     Dosage: 20 MG QD PO
     Route: 048

REACTIONS (1)
  - COMPLETED SUICIDE [None]
